FAERS Safety Report 7481756-0 (Version None)
Quarter: 2011Q2

REPORT INFORMATION
  Report Type: 
  Country: None (occurrence: None)
  Receive Date: 20110516
  Receipt Date: 20110506
  Transmission Date: 20111010
  Serious: Yes (Death, Hospitalization)
  Sender: FDA-Public Use
  Company Number: B0717555A

PATIENT
  Age: 64 Year
  Sex: Male
  Weight: 67 kg

DRUGS (6)
  1. VALACYCLOVIR HYDROCHLORIDE [Suspect]
     Route: 065
  2. PREDNISONE [Suspect]
     Route: 048
  3. ATOVAQUONE [Suspect]
     Route: 065
  4. NEORECORMON [Concomitant]
  5. OFLOXACIN [Concomitant]
     Indication: URINARY TRACT INFECTION
  6. MONOCLONAL ANTIBODY [Suspect]
     Indication: CASTLEMAN'S DISEASE
     Route: 042
     Dates: start: 20110421, end: 20110421

REACTIONS (14)
  - BLOOD PRESSURE DECREASED [None]
  - DYSPNOEA [None]
  - NIGHT SWEATS [None]
  - ASTHENIA [None]
  - JAUNDICE [None]
  - GENERAL PHYSICAL HEALTH DETERIORATION [None]
  - TACHYPNOEA [None]
  - ANURIA [None]
  - ACUTE HEPATIC FAILURE [None]
  - SINUS TACHYCARDIA [None]
  - HYPOXIA [None]
  - HYPOGLYCAEMIA [None]
  - ACUTE RESPIRATORY FAILURE [None]
  - HYPERCAPNIA [None]
